FAERS Safety Report 10367812 (Version 1)
Quarter: 2014Q3

REPORT INFORMATION
  Report Type: Report from Study
  Country: MX (occurrence: MX)
  Receive Date: 20140807
  Receipt Date: 20140807
  Transmission Date: 20150326
  Serious: Yes (Death)
  Sender: FDA-Public Use
  Company Number: PHHY2014MX096159

PATIENT
  Age: 77 Year
  Sex: Male

DRUGS (2)
  1. SPIRIVA [Concomitant]
     Active Substance: TIOTROPIUM BROMIDE MONOHYDRATE
     Indication: LUNG DISORDER
     Dosage: 1 DF, UNK
     Dates: start: 200908
  2. ONBREZ [Suspect]
     Active Substance: INDACATEROL
     Indication: LUNG DISORDER
     Dosage: 150 UG, DAILY
     Route: 055
     Dates: start: 200908

REACTIONS (1)
  - Cardiac arrest [Fatal]

NARRATIVE: CASE EVENT DATE: 201406
